FAERS Safety Report 7586499-0 (Version None)
Quarter: 2011Q3

REPORT INFORMATION
  Report Type: 
  Country: None (occurrence: None)
  Receive Date: 20110701
  Receipt Date: 20110624
  Transmission Date: 20111222
  Serious: Yes (Hospitalization)
  Sender: FDA-Public Use
  Company Number: JP-ROCHE-781051

PATIENT
  Sex: Female
  Weight: 11.6 kg

DRUGS (2)
  1. ROCEPHIN [Suspect]
     Indication: PERITONSILLITIS
     Route: 041
     Dates: start: 20110516, end: 20110526
  2. FLOMAX [Concomitant]
     Dosage: DOSAGE IS UNCERTAIN.
     Dates: start: 20110516, end: 20110516

REACTIONS (1)
  - CHOLELITHIASIS [None]
